FAERS Safety Report 9552099 (Version 2)
Quarter: 2013Q3

REPORT INFORMATION
  Report Type: Spontaneous
  Country: CA (occurrence: CA)
  Receive Date: 20130925
  Receipt Date: 20130925
  Transmission Date: 20140515
  Serious: Yes (Death)
  Sender: FDA-Public Use
  Company Number: CA-ROCHE-1250082

PATIENT
  Age: 57 Year
  Sex: Male
  Weight: 76.2 kg

DRUGS (7)
  1. XELODA [Suspect]
     Indication: GASTROINTESTINAL CARCINOMA
     Route: 048
     Dates: start: 20130325
  2. DOXAZOSIN [Concomitant]
  3. ASPIRIN [Concomitant]
     Route: 065
  4. GLUCONORM (CANADA) [Concomitant]
  5. FUROSEMIDE [Concomitant]
  6. AMILORIDE [Concomitant]
  7. ONDANSETRON [Concomitant]

REACTIONS (8)
  - Death [Fatal]
  - Hair disorder [Not Recovered/Not Resolved]
  - Swollen tongue [Not Recovered/Not Resolved]
  - Dysphagia [Not Recovered/Not Resolved]
  - Gastrooesophageal reflux disease [Unknown]
  - Nausea [Unknown]
  - Weight decreased [Not Recovered/Not Resolved]
  - Pain [Not Recovered/Not Resolved]
